FAERS Safety Report 6004855-9 (Version None)
Quarter: 2008Q4

REPORT INFORMATION
  Report Type: 
  Country: None (occurrence: None)
  Receive Date: 20081216
  Receipt Date: 20081211
  Transmission Date: 20090506
  Serious: Yes (Hospitalization)
  Sender: FDA-Public Use
  Company Number: DE-ABBOTT-08P-062-0492332-00

PATIENT
  Sex: Female

DRUGS (10)
  1. HUMIRA [Suspect]
     Indication: RHEUMATOID ARTHRITIS
     Route: 058
     Dates: start: 20040701, end: 20050501
  2. ETANERCEPT [Concomitant]
     Indication: RHEUMATOID ARTHRITIS
     Route: 065
     Dates: start: 20050601, end: 20071201
  3. ETANERCEPT [Concomitant]
     Route: 065
     Dates: start: 20071201, end: 20081001
  4. METHOTREXATE [Concomitant]
     Indication: RHEUMATOID ARTHRITIS
     Route: 065
     Dates: start: 20080301, end: 20080501
  5. LEFLUNOMIDE [Concomitant]
     Indication: RHEUMATOID ARTHRITIS
     Route: 065
     Dates: start: 20000601, end: 20040801
  6. LEFLUNOMIDE [Concomitant]
     Route: 065
     Dates: start: 20051101, end: 20081001
  7. AZATHIOPRINE [Concomitant]
     Indication: RHEUMATOID ARTHRITIS
     Route: 065
     Dates: start: 20080601, end: 20081001
  8. PREDNISOLONE [Concomitant]
     Indication: RHEUMATOID ARTHRITIS
     Route: 065
     Dates: start: 19930101, end: 20081001
  9. TILIDIN [Concomitant]
     Indication: PAIN
     Dosage: 200 MG DAILY
     Route: 065
     Dates: end: 20081001
  10. CALCIUM CARBONATE [Concomitant]
     Indication: DRUG USE FOR UNKNOWN INDICATION
     Route: 065
     Dates: end: 20081001

REACTIONS (7)
  - ASTHENIA [None]
  - CARDIOVASCULAR DISORDER [None]
  - DEHYDRATION [None]
  - DIARRHOEA [None]
  - GASTROENTERITIS [None]
  - GENERAL PHYSICAL HEALTH DETERIORATION [None]
  - ILEUS [None]
